FAERS Safety Report 9922033 (Version 2)
Quarter: 2014Q1

REPORT INFORMATION
  Report Type: Report from Study
  Country: US (occurrence: US)
  Receive Date: 20140225
  Receipt Date: 20140225
  Transmission Date: 20141002
  Serious: Yes (Other)
  Sender: FDA-Public Use
  Company Number: US-TEVA-448267USA

PATIENT
  Age: 56 Year
  Sex: Female

DRUGS (5)
  1. COPAXONE [Suspect]
     Indication: MULTIPLE SCLEROSIS
     Dates: start: 19990308
  2. HYDROCODONE W/ACETAMINOPHEN [Concomitant]
  3. MICARDIS HCT [Concomitant]
  4. ASPIRIN [Concomitant]
  5. COQ10 [Concomitant]

REACTIONS (1)
  - Type 2 diabetes mellitus [Recovering/Resolving]
